FAERS Safety Report 18514060 (Version 1)
Quarter: 2020Q4

REPORT INFORMATION
  Report Type: Spontaneous
  Country: US (occurrence: US)
  Receive Date: 20201117
  Receipt Date: 20201117
  Transmission Date: 20210114
  Serious: No
  Sender: FDA-Public Use
  Company Number: US-NALPROPION PHARMACEUTICALS INC.-2019-008595

PATIENT
  Age: 41 Year
  Sex: Female
  Weight: 89.8 kg

DRUGS (3)
  1. CONTRAVE [Suspect]
     Active Substance: BUPROPION HYDROCHLORIDE\NALTREXONE HYDROCHLORIDE
     Dosage: ONE TABLET IN THE MORNING, ONE TABLET IN THE EVENING
     Route: 048
     Dates: start: 201908, end: 201908
  2. CONTRAVE [Suspect]
     Active Substance: BUPROPION HYDROCHLORIDE\NALTREXONE HYDROCHLORIDE
     Indication: WEIGHT CONTROL
     Dosage: ONE TABLET DAILY IN THE MORNING
     Route: 048
     Dates: start: 201908, end: 201908
  3. LEXAPRO [Concomitant]
     Active Substance: ESCITALOPRAM OXALATE
     Indication: DEPRESSION
     Dosage: 5 MG, QD IN THE MORNING
     Route: 048

REACTIONS (3)
  - Vomiting [Unknown]
  - Drug titration error [Unknown]
  - Nausea [Unknown]

NARRATIVE: CASE EVENT DATE: 201908
